FAERS Safety Report 9652061 (Version 1)
Quarter: 2013Q4

REPORT INFORMATION
  Report Type: Spontaneous
  Country: US (occurrence: None)
  Receive Date: 20131028
  Receipt Date: 20131028
  Transmission Date: 20140711
  Serious: No
  Sender: FDA-Public Use
  Company Number: None

PATIENT
  Age: 49 Year
  Sex: Female

DRUGS (1)
  1. LUPRON [Suspect]
     Dosage: Q3M
     Route: 030
     Dates: start: 201303

REACTIONS (1)
  - Ulcer haemorrhage [None]
